FAERS Safety Report 6732320-X (Version None)
Quarter: 2010Q2

REPORT INFORMATION
  Report Type: 
  Country: None (occurrence: None)
  Receive Date: 20100519
  Receipt Date: 20100513
  Transmission Date: 20101027
  Serious: Yes (Life-Threatening, Hospitalization)
  Sender: FDA-Public Use
  Company Number: JP-TYCO HEALTHCARE/MALLINCKRODT-T201001052

PATIENT
  Age: 85 Year
  Sex: Female
  Weight: 39 kg

DRUGS (7)
  1. OPTIRAY 350 [Suspect]
     Indication: COMPUTERISED TOMOGRAM
     Dosage: 73 ML, SINGLE
     Route: 042
     Dates: start: 20100420, end: 20100420
  2. FERROUS CITRATE [Concomitant]
     Indication: ANAEMIA
     Dosage: 100 MG, BID
     Route: 048
     Dates: start: 20051020
  3. FAMOTIDINE [Concomitant]
     Indication: GASTRITIS
     Dosage: 20 MG, BID
     Route: 048
     Dates: start: 20050929
  4. PANCREATIC ENZYMES [Concomitant]
     Indication: GASTRITIS
     Dosage: 1 CAP TID
     Route: 048
     Dates: start: 20050929
  5. FUROSEMIDE [Concomitant]
     Indication: OEDEMA PERIPHERAL
     Dosage: 20 MG, QD
     Route: 048
     Dates: start: 20060302
  6. TEGAFUR, GIMERACIL, OTERACIL POTASSIUM [Concomitant]
     Indication: PANCREATIC CARCINOMA
     Dosage: 2 CAPS BID
     Route: 048
     Dates: start: 20060202
  7. TEGAFUR, GIMERACIL, OTERACIL POTASSIUM [Concomitant]
     Indication: METASTASES TO LIVER

REACTIONS (1)
  - ANAPHYLACTIC SHOCK [None]
